FAERS Safety Report 13363201 (Version 2)
Quarter: 2017Q3

REPORT INFORMATION
  Report Type: Spontaneous
  Country: GB (occurrence: GB)
  Receive Date: 20170323
  Receipt Date: 20170914
  Transmission Date: 20171127
  Serious: Yes (Other)
  Sender: FDA-Public Use
  Company Number: GB-009507513-1703GBR008310

PATIENT
  Age: 38 Year
  Sex: Female

DRUGS (1)
  1. NEXPLANON [Suspect]
     Active Substance: ETONOGESTREL
     Indication: CONTRACEPTION
     Dosage: SD1 (SINGLE DOSE 1)
     Route: 059
     Dates: start: 20150528

REACTIONS (6)
  - Pregnancy on contraceptive [Recovered/Resolved]
  - Abortion spontaneous [Recovered/Resolved]
  - Implant site pain [Unknown]
  - Unintended pregnancy [Recovered/Resolved]
  - Implant site swelling [Unknown]
  - Complication of delivery [Unknown]

NARRATIVE: CASE EVENT DATE: 20150610
